FAERS Safety Report 12442666 (Version 1)
Quarter: 2016Q2

REPORT INFORMATION
  Report Type: Spontaneous
  Country: US (occurrence: None)
  Receive Date: 20160606
  Receipt Date: 20160606
  Transmission Date: 20160815
  Serious: Yes (Other)
  Sender: FDA-Public Use
  Company Number: None

PATIENT
  Age: 71 Year
  Sex: Female
  Weight: 68.04 kg

DRUGS (1)
  1. METOPROLOL ER 50MG LEGACY [Suspect]
     Active Substance: METOPROLOL SUCCINATE

REACTIONS (7)
  - Product substitution issue [None]
  - Joint swelling [None]
  - Heart rate decreased [None]
  - Blood pressure inadequately controlled [None]
  - Peripheral swelling [None]
  - Dyspnoea [None]
  - Asthenia [None]

NARRATIVE: CASE EVENT DATE: 20160101
